FAERS Safety Report 23320627 (Version 1)
Quarter: 2023Q4

REPORT INFORMATION
  Report Type: Spontaneous
  Country: US (occurrence: US)
  Receive Date: 20231220
  Receipt Date: 20231220
  Transmission Date: 20240110
  Serious: Yes (Hospitalization, Other)
  Sender: FDA-Public Use
  Company Number: US-BAYER-2023A178576

PATIENT
  Age: 78 Year
  Sex: Male

DRUGS (4)
  1. ADEMPAS [Suspect]
     Active Substance: RIOCIGUAT
     Indication: Pulmonary hypertension
     Dosage: 1 MG, QD
     Route: 048
  2. ELIQUIS [Suspect]
     Active Substance: APIXABAN
     Indication: Respiratory failure
  3. INALER [Concomitant]
     Indication: Chronic obstructive pulmonary disease
  4. INALER [Concomitant]
     Indication: Respiratory failure

REACTIONS (4)
  - Respiratory failure [Not Recovered/Not Resolved]
  - Haemorrhage [Not Recovered/Not Resolved]
  - Pulmonary embolism [Unknown]
  - Incorrect product administration duration [None]
